FAERS Safety Report 12356540 (Version 1)
Quarter: 2016Q2

REPORT INFORMATION
  Report Type: Spontaneous
  Country: DE (occurrence: DE)
  Receive Date: 20160511
  Receipt Date: 20160511
  Transmission Date: 20160815
  Serious: Yes (Death, Other)
  Sender: FDA-Public Use
  Company Number: DE-ACTAVIS-2016-09663

PATIENT
  Age: 52 Year
  Sex: Female

DRUGS (5)
  1. VORICONAZOLE (UNKNOWN) [Suspect]
     Active Substance: VORICONAZOLE
     Dosage: UNK
     Route: 048
  2. CARBAMAZEPINE (UNKNOWN) [Suspect]
     Active Substance: CARBAMAZEPINE
     Indication: TRIGEMINAL NEURALGIA
     Dosage: UNK
     Route: 065
  3. VORICONAZOLE (UNKNOWN) [Suspect]
     Active Substance: VORICONAZOLE
     Dosage: UNK
     Route: 048
  4. VORICONAZOLE (UNKNOWN) [Suspect]
     Active Substance: VORICONAZOLE
     Indication: CEREBRAL ASPERGILLOSIS
     Dosage: UNK
     Route: 042
  5. VORICONAZOLE (UNKNOWN) [Suspect]
     Active Substance: VORICONAZOLE
     Dosage: UNK
     Route: 042

REACTIONS (6)
  - Hemiparesis [Not Recovered/Not Resolved]
  - Enzyme induction [Not Recovered/Not Resolved]
  - Drug level below therapeutic [Not Recovered/Not Resolved]
  - Coma [Not Recovered/Not Resolved]
  - Cerebral infarction [Fatal]
  - Drug interaction [Not Recovered/Not Resolved]
